APPROVED DRUG PRODUCT: DOXYCYCLINE HYCLATE
Active Ingredient: DOXYCYCLINE HYCLATE
Strength: EQ 75MG BASE
Dosage Form/Route: CAPSULE, DELAYED RELEASE;ORAL
Application: A065281 | Product #001
Applicant: BAUSCH HEALTH US LLC
Approved: Dec 21, 2005 | RLD: No | RS: No | Type: DISCN